FAERS Safety Report 5414368-0 (Version None)
Quarter: 2007Q3

REPORT INFORMATION
  Report Type: 
  Country: None (occurrence: None)
  Receive Date: 20070814
  Receipt Date: 20070806
  Transmission Date: 20080115
  Serious: Yes (Other)
  Sender: FDA-Public Use
  Company Number: US-GENENTECH-229964

PATIENT
  Sex: Male
  Weight: 46.6 kg

DRUGS (3)
  1. SOMATROPIN [Suspect]
     Indication: GROWTH HORMONE DEFICIENCY
     Dosage: 2.6 MG, 7/WEEK
     Route: 058
     Dates: start: 20050303, end: 20061128
  2. ALUPENT [Concomitant]
     Indication: DRUG USE FOR UNKNOWN INDICATION
     Dosage: UNK, PRN
     Route: 048
  3. ZYRTEC [Concomitant]
     Indication: DRUG USE FOR UNKNOWN INDICATION
     Dosage: UNK, PRN
     Route: 048

REACTIONS (2)
  - COMPLEX REGIONAL PAIN SYNDROME [None]
  - EPIPHYSIOLYSIS [None]
